FAERS Safety Report 10201808 (Version 2)
Quarter: 2014Q2

REPORT INFORMATION
  Report Type: Spontaneous
  Country: US (occurrence: US)
  Receive Date: 20140528
  Receipt Date: 20140528
  Transmission Date: 20141212
  Serious: No
  Sender: FDA-Public Use
  Company Number: US-BRISTOL-MYERS SQUIBB COMPANY-19160605

PATIENT
  Sex: Female

DRUGS (4)
  1. METFORMIN HCL [Suspect]
     Indication: DIABETES MELLITUS
  2. GLYBURIDE [Suspect]
     Indication: DIABETES MELLITUS
  3. NOVOLOG [Suspect]
     Indication: DIABETES MELLITUS
     Dosage: 12DF:12UNITS
  4. LANTUS [Suspect]
     Indication: DIABETES MELLITUS
     Dosage: 1DF:50UNITS

REACTIONS (1)
  - Drug ineffective [Unknown]
